FAERS Safety Report 9314587 (Version 1)
Quarter: 2013Q2

REPORT INFORMATION
  Report Type: Spontaneous
  Country: US (occurrence: US)
  Receive Date: 20130529
  Receipt Date: 20130529
  Transmission Date: 20140414
  Serious: Yes (Death, Hospitalization, Other)
  Sender: FDA-Public Use
  Company Number: US-ASTELLAS-2013US004262

PATIENT
  Sex: Male

DRUGS (1)
  1. XTANDI [Suspect]
     Indication: PROSTATE CANCER
     Dosage: 160 MG, UID/QD
     Route: 048
     Dates: start: 20130101, end: 201302

REACTIONS (5)
  - Acute respiratory failure [Fatal]
  - Psoriasis [Unknown]
  - Renal failure acute [Fatal]
  - Malignant neoplasm progression [Fatal]
  - Metastasis [Unknown]
